FAERS Safety Report 17683322 (Version 4)
Quarter: 2020Q2

REPORT INFORMATION
  Report Type: Spontaneous
  Country: US (occurrence: US)
  Receive Date: 20200420
  Receipt Date: 20200622
  Transmission Date: 20200714
  Serious: No
  Sender: FDA-Public Use
  Company Number: US-009507513-2004USA004122

PATIENT
  Sex: Female

DRUGS (2)
  1. PROVENTIL [Suspect]
     Active Substance: ALBUTEROL
     Dosage: 2 PUFFS, EVERY 6 HOURS AS NEEDED
     Route: 055
     Dates: start: 2000
  2. PROVENTIL [Suspect]
     Active Substance: ALBUTEROL
     Dosage: 2 PUFFS, EVERY 6 HOURS AS NEEDED
     Route: 055
     Dates: start: 20200226

REACTIONS (5)
  - Malaise [Unknown]
  - Product quality issue [Unknown]
  - Poor quality device used [Unknown]
  - Drug ineffective [Unknown]
  - Incorrect dose administered by product [Unknown]

NARRATIVE: CASE EVENT DATE: 2020
